FAERS Safety Report 4806623-X (Version None)
Quarter: 2005Q4

REPORT INFORMATION
  Report Type: 
  Country: None (occurrence: None)
  Receive Date: 20051019
  Receipt Date: 20051004
  Transmission Date: 20060501
  Serious: Yes (Death, Hospitalization, Other)
  Sender: FDA-Public Use
  Company Number: USA0507102853

PATIENT
  Age: 87 Year
  Sex: Female

DRUGS (3)
  1. FORTEO [Suspect]
     Indication: COMPRESSION FRACTURE
     Dates: start: 20050712, end: 20050713
  2. KADIAN [Concomitant]
  3. MORPHINE [Concomitant]

REACTIONS (10)
  - ANOREXIA [None]
  - CARDIAC FAILURE [None]
  - CONFUSIONAL STATE [None]
  - DYSPNOEA [None]
  - HALLUCINATION [None]
  - HALLUCINATION, VISUAL [None]
  - NAUSEA [None]
  - PHARYNGOESOPHAGEAL DIVERTICULUM [None]
  - PNEUMONIA ASPIRATION [None]
  - THIRST DECREASED [None]
